FAERS Safety Report 12850945 (Version 6)
Quarter: 2017Q2

REPORT INFORMATION
  Report Type: Report from Study
  Country: JP (occurrence: JP)
  Receive Date: 20161015
  Receipt Date: 20170615
  Transmission Date: 20170830
  Serious: Yes (Hospitalization, Other)
  Sender: FDA-Public Use
  Company Number: JP-AMGEN-JPNCT2016142628

PATIENT
  Age: 49 Year
  Sex: Male
  Weight: 79.9 kg

DRUGS (10)
  1. 5-FU                               /00098801/ [Concomitant]
     Active Substance: FLUOROURACIL
     Dosage: 4550 MG, Q2WK
     Route: 041
     Dates: start: 20160927, end: 20160927
  2. CALCIUM LEVOFOLINATE [Concomitant]
     Active Substance: LEVOLEUCOVORIN CALCIUM
     Indication: RECTOSIGMOID CANCER
     Dosage: 375 MG, Q2WEEKS
     Route: 041
     Dates: start: 20160927, end: 20160927
  3. OXALIPLATIN. [Concomitant]
     Active Substance: OXALIPLATIN
     Indication: RECTOSIGMOID CANCER
     Dosage: 160 MG, Q2WEEKS
     Route: 041
     Dates: start: 20160927, end: 20160927
  4. 5-FU                               /00098801/ [Concomitant]
     Active Substance: FLUOROURACIL
     Indication: RECTOSIGMOID CANCER
     Dosage: 750 MG, Q2WK
     Route: 040
     Dates: start: 20160927, end: 20160927
  5. 5-FU                               /00098801/ [Concomitant]
     Active Substance: FLUOROURACIL
     Dosage: UNK
     Route: 042
     Dates: start: 20161116, end: 20170308
  6. CALCIUM LEVOFOLINATE [Concomitant]
     Active Substance: LEVOLEUCOVORIN CALCIUM
     Dosage: UNK UNK, Q2WEEKS
     Route: 041
     Dates: start: 20161019, end: 20161102
  7. 5-FU                               /00098801/ [Concomitant]
     Active Substance: FLUOROURACIL
     Dosage: 200 MG/M2, Q2WK
     Route: 040
     Dates: start: 20161019, end: 20161102
  8. OXALIPLATIN. [Concomitant]
     Active Substance: OXALIPLATIN
     Dosage: 65 MG/M2, Q2WEEKS
     Route: 041
     Dates: start: 20161019, end: 20161102
  9. 5-FU                               /00098801/ [Concomitant]
     Active Substance: FLUOROURACIL
     Dosage: 2000 MG/M2, Q2WK
     Route: 041
     Dates: start: 20161019, end: 20161102
  10. PANITUMUMAB [Suspect]
     Active Substance: PANITUMUMAB
     Indication: RECTOSIGMOID CANCER
     Dosage: 470 MG, Q2WK
     Route: 041
     Dates: start: 20160927, end: 20161102

REACTIONS (5)
  - Peripheral sensory neuropathy [Not Recovered/Not Resolved]
  - Enterocolitis [Recovered/Resolved]
  - Paronychia [Not Recovered/Not Resolved]
  - Diarrhoea [Unknown]
  - Stomatitis [Unknown]

NARRATIVE: CASE EVENT DATE: 20161001
